FAERS Safety Report 8205173-0 (Version None)
Quarter: 2012Q1

REPORT INFORMATION
  Report Type: 
  Country: None (occurrence: None)
  Receive Date: 20120313
  Receipt Date: 20120219
  Transmission Date: 20120608
  Serious: Yes (Other)
  Sender: FDA-Public Use
  Company Number: IL-ROCHE-1027540

PATIENT
  Sex: Female

DRUGS (1)
  1. MABTHERA [Suspect]
     Indication: HAEMOLYTIC ANAEMIA
     Dates: start: 20081201, end: 20090101

REACTIONS (1)
  - FEBRILE NEUTROPENIA [None]
